FAERS Safety Report 19598017 (Version 5)
Quarter: 2021Q4

REPORT INFORMATION
  Report Type: Report from Study
  Country: CA (occurrence: CA)
  Receive Date: 20210722
  Receipt Date: 20211111
  Transmission Date: 20220303
  Serious: Yes (Death, Hospitalization, Other)
  Sender: FDA-Public Use
  Company Number: CA-TAKEDA-2021TUS039376

PATIENT
  Age: 73 Year
  Sex: Male

DRUGS (15)
  1. HUMAN IMMUNOGLOBULIN G [Suspect]
     Active Substance: HUMAN IMMUNOGLOBULIN G
     Indication: Secondary immunodeficiency
     Dosage: 5 GRAM, 1/WEEK
     Route: 065
     Dates: start: 20210611
  2. HUMAN IMMUNOGLOBULIN G [Suspect]
     Active Substance: HUMAN IMMUNOGLOBULIN G
     Dosage: 5 GRAM, 1/WEEK
     Route: 065
     Dates: start: 20210611
  3. HUMAN IMMUNOGLOBULIN G [Suspect]
     Active Substance: HUMAN IMMUNOGLOBULIN G
     Dosage: 5 GRAM, 1/WEEK
     Route: 065
     Dates: start: 20210611
  4. CRESEMBA [Concomitant]
     Active Substance: ISAVUCONAZONIUM SULFATE
     Indication: Fungal infection
     Dosage: 100 MILLIGRAM, QD
     Route: 065
  5. FRAGMIN [Concomitant]
     Active Substance: DALTEPARIN SODIUM
     Indication: Anticoagulant therapy
     Dosage: 500 INTERNATIONAL UNIT, QD
     Route: 065
  6. BISOPROLOL [Concomitant]
     Active Substance: BISOPROLOL
     Indication: Blood pressure abnormal
     Dosage: 2.5 MILLIGRAM, QD
  7. BISOPROLOL [Concomitant]
     Active Substance: BISOPROLOL
     Indication: Heart rate abnormal
  8. PANTOPRAZOLE [Concomitant]
     Active Substance: PANTOPRAZOLE
     Indication: Gastric pH increased
     Dosage: 40 MILLIGRAM, QD
     Route: 065
  9. HYDROMORPHONE [Concomitant]
     Active Substance: HYDROMORPHONE
     Indication: Pain
     Dosage: 2 MILLIGRAM, PRN
     Route: 065
  10. HYDROMORPHONE [Concomitant]
     Active Substance: HYDROMORPHONE
     Dosage: 6 MILLIGRAM, BID
     Route: 065
  11. SENOKOT [Concomitant]
     Active Substance: SENNOSIDES
     Indication: Laxative supportive care
     Dosage: 8.6 MILLIGRAM, QD
     Route: 065
  12. MAGNESIUM OXIDE [Concomitant]
     Active Substance: MAGNESIUM OXIDE
     Indication: Supplementation therapy
     Dosage: 420 MILLIGRAM, BID
     Route: 065
  13. ZINC [Concomitant]
     Active Substance: ZINC
     Indication: Supplementation therapy
     Dosage: 50 MILLIGRAM
     Route: 065
  14. LORAZEPAM [Concomitant]
     Active Substance: LORAZEPAM
     Indication: Product used for unknown indication
     Dosage: 1 MILLIGRAM, QD
     Route: 065
  15. CEPHALEXIN [Concomitant]
     Active Substance: CEPHALEXIN
     Indication: Antibiotic therapy
     Dosage: 500 MILLIGRAM, QID
     Route: 065

REACTIONS (4)
  - Death [Fatal]
  - Infection [Fatal]
  - CSF volume increased [Unknown]
  - Fatigue [Recovered/Resolved]

NARRATIVE: CASE EVENT DATE: 20210611
